FAERS Safety Report 20867731 (Version 2)
Quarter: 2022Q3

REPORT INFORMATION
  Report Type: Spontaneous
  Country: JP (occurrence: JP)
  Receive Date: 20220524
  Receipt Date: 20220707
  Transmission Date: 20221027
  Serious: No
  Sender: FDA-Public Use
  Company Number: JP-PFIZER INC-202200636196

PATIENT
  Age: 50 Year
  Sex: Female
  Weight: 60 kg

DRUGS (6)
  1. PAXLOVID [Suspect]
     Active Substance: NIRMATRELVIR\RITONAVIR
     Indication: COVID-19 treatment
     Dosage: [PF-07321332 300 MG]/[RITONAVIR 100 MG]; 2X/DAY;
     Route: 048
     Dates: start: 20220419, end: 20220425
  2. NOLVADEX [Concomitant]
     Active Substance: TAMOXIFEN CITRATE
     Dosage: 20 MG, 1X/DAY
     Route: 048
     Dates: start: 20120327
  3. SALIPARA [Concomitant]
     Dosage: 5 ML
     Route: 048
     Dates: start: 20220419, end: 20220425
  4. SENEGA SYRUP [Concomitant]
     Dosage: 4 ML
     Route: 048
     Dates: start: 20220419, end: 20220425
  5. HERBALS [Concomitant]
     Active Substance: HERBALS
     Dosage: 3 ML
     Route: 048
     Dates: start: 20220419, end: 20220425
  6. SIMPLE SYRUP [Concomitant]
     Dosage: UNK, 3X/DAY
     Route: 048
     Dates: start: 20220419, end: 20220425

REACTIONS (9)
  - Blood pressure decreased [Unknown]
  - Gastrooesophageal reflux disease [Recovering/Resolving]
  - Rash [Recovered/Resolved]
  - Eczema [Unknown]
  - Pruritus [Unknown]
  - Dysgeusia [Unknown]
  - Rash erythematous [Recovering/Resolving]
  - Incorrect product administration duration [Unknown]
  - Off label use [Unknown]

NARRATIVE: CASE EVENT DATE: 20220419
